FAERS Safety Report 6521424-2 (Version None)
Quarter: 2009Q4

REPORT INFORMATION
  Report Type: 
  Country: None (occurrence: None)
  Receive Date: 20091230
  Receipt Date: 20091228
  Transmission Date: 20100525
  Serious: Yes (Hospitalization, Other)
  Sender: FDA-Public Use
  Company Number: DE-ROCHE-672109

PATIENT
  Sex: Female
  Weight: 80 kg

DRUGS (1)
  1. TAMIFLU [Suspect]
     Route: 048
     Dates: start: 20091113, end: 20091117

REACTIONS (7)
  - ANXIETY [None]
  - CONFUSIONAL STATE [None]
  - DELUSION [None]
  - HEADACHE [None]
  - HEMIPLEGIA [None]
  - NEUROBORRELIOSIS [None]
  - PARAESTHESIA [None]
